FAERS Safety Report 15326127 (Version 1)
Quarter: 2018Q3

REPORT INFORMATION
  Report Type: Spontaneous
  Country: US (occurrence: US)
  Receive Date: 20180823
  Receipt Date: 20180823
  Transmission Date: 20181010
  Serious: Yes (Death, Hospitalization)
  Sender: FDA-Public Use
  Company Number: None

PATIENT
  Age: 73 Year
  Sex: Female
  Weight: 68.5 kg

DRUGS (4)
  1. CINVANTI [Concomitant]
     Active Substance: APREPITANT
  2. TRABECTEDIN [Suspect]
     Active Substance: TRABECTEDIN
     Indication: ENDOMETRIAL SARCOMA METASTATIC
     Route: 042
     Dates: start: 20180820, end: 20180821
  3. DEXAMETHASONE. [Concomitant]
     Active Substance: DEXAMETHASONE
  4. ONDANSETRON [Concomitant]
     Active Substance: ONDANSETRON

REACTIONS (4)
  - Dyspnoea [None]
  - Unresponsive to stimuli [None]
  - Abdominal pain [None]
  - Cardiac arrest [None]

NARRATIVE: CASE EVENT DATE: 20180822
